FAERS Safety Report 18816876 (Version 6)
Quarter: 2025Q1

REPORT INFORMATION
  Report Type: Spontaneous
  Country: US (occurrence: US)
  Receive Date: 20210201
  Receipt Date: 20250109
  Transmission Date: 20250409
  Serious: No
  Sender: PFIZER
  Company Number: US-PFIZER INC-2021085099

PATIENT
  Age: 72 Year
  Sex: Female

DRUGS (12)
  1. PROPOFOL [Suspect]
     Active Substance: PROPOFOL
  2. CODEINE PHOSPHATE\GUAIFENESIN\PSEUDOEPHEDRINE HYDROCHLORIDE [Suspect]
     Active Substance: CODEINE PHOSPHATE\GUAIFENESIN\PSEUDOEPHEDRINE HYDROCHLORIDE
  3. GABAPENTIN [Suspect]
     Active Substance: GABAPENTIN
  4. OXYCODONE [Suspect]
     Active Substance: OXYCODONE
  5. DILAUDID [Suspect]
     Active Substance: HYDROMORPHONE HYDROCHLORIDE
  6. HYDROCODONE [Suspect]
     Active Substance: HYDROCODONE
  7. IODINE (IODINE) [Suspect]
     Active Substance: IODINE
  8. AMOXICILLIN\CLAVULANATE POTASSIUM [Suspect]
     Active Substance: AMOXICILLIN\CLAVULANATE POTASSIUM
  9. PREDNISOLONE [Suspect]
     Active Substance: PREDNISOLONE
  10. PREDNISONE [Suspect]
     Active Substance: PREDNISONE
  11. CLAVULANIC ACID [Suspect]
     Active Substance: CLAVULANIC ACID
  12. ACETAMINOPHEN\HYDROCODONE [Suspect]
     Active Substance: ACETAMINOPHEN\HYDROCODONE

REACTIONS (1)
  - Drug hypersensitivity [Unknown]
